FAERS Safety Report 5027664-6 (Version None)
Quarter: 2006Q2

REPORT INFORMATION
  Report Type: 
  Country: None (occurrence: None)
  Receive Date: 20060614
  Receipt Date: 20060614
  Transmission Date: 20061013
  Serious: Yes (Hospitalization)
  Sender: FDA-Public Use
  Company Number: None

PATIENT
  Sex: Male

DRUGS (2)
  1. LISINOPRIL [Suspect]
     Indication: DIABETES MELLITUS
     Dates: start: 20060606, end: 20060611
  2. LISINOPRIL [Suspect]
     Indication: HYPERTENSION
     Dates: start: 20060606, end: 20060611

REACTIONS (2)
  - PETECHIAE [None]
  - PHARMACEUTICAL PRODUCT COMPLAINT [None]
